FAERS Safety Report 16660799 (Version 3)
Quarter: 2019Q4

REPORT INFORMATION
  Report Type: Spontaneous
  Country: HU (occurrence: HU)
  Receive Date: 20190802
  Receipt Date: 20191004
  Transmission Date: 20200122
  Serious: Yes (Hospitalization, Other)
  Sender: FDA-Public Use
  Company Number: HU-SA-2019SA206386

PATIENT
  Age: 18 Year
  Sex: Female

DRUGS (2)
  1. MYOZYME [Suspect]
     Active Substance: ALGLUCOSIDASE ALFA
     Indication: GLYCOGEN STORAGE DISEASE TYPE II
     Dosage: 23 AMPULES
     Route: 041
     Dates: start: 20190718, end: 20190718
  2. XANAX [Concomitant]
     Active Substance: ALPRAZOLAM
     Dosage: 0.5 MG, QD
     Route: 065

REACTIONS (12)
  - C-reactive protein increased [Recovered/Resolved]
  - Abdominal lymphadenopathy [Recovered/Resolved]
  - Phlebitis [Recovered/Resolved]
  - Carbohydrate metabolism disorder [Recovered/Resolved]
  - Deep vein thrombosis [Unknown]
  - Abdominal pain lower [Recovered/Resolved]
  - White blood cell count increased [Recovered/Resolved]
  - Lymphadenitis [Recovered/Resolved]
  - Peripheral swelling [Recovered/Resolved]
  - Ascites [Recovered/Resolved]
  - Hepatic enzyme increased [Recovered/Resolved]
  - Thrombophlebitis [Recovered/Resolved]

NARRATIVE: CASE EVENT DATE: 201907
